FAERS Safety Report 6965399-0 (Version None)
Quarter: 2010Q3

REPORT INFORMATION
  Report Type: 
  Country: None (occurrence: None)
  Receive Date: 20100903
  Receipt Date: 20100831
  Transmission Date: 20110219
  Serious: Yes (Other)
  Sender: FDA-Public Use
  Company Number: A0878671A

PATIENT

DRUGS (2)
  1. REQUIP XL [Suspect]
     Indication: PARKINSON'S DISEASE
     Route: 048
  2. UNKNOWN [Concomitant]

REACTIONS (2)
  - HALLUCINATION [None]
  - WITHDRAWAL SYNDROME [None]
